FAERS Safety Report 18880039 (Version 2)
Quarter: 2021Q1

REPORT INFORMATION
  Report Type: Report from Study
  Country: None (occurrence: NL)
  Receive Date: 20210211
  Receipt Date: 20210214
  Transmission Date: 20210420
  Serious: Yes (Hospitalization)
  Sender: FDA-Public Use
  Company Number: NL-ABBVIE-20K-114-3714040-00

PATIENT
  Sex: Female

DRUGS (6)
  1. PRAMIPEXOL [Concomitant]
     Active Substance: PRAMIPEXOLE
     Indication: PRODUCT USED FOR UNKNOWN INDICATION
     Dates: start: 20200408
  2. MACROGOL [Concomitant]
     Active Substance: POLYETHYLENE GLYCOLS
     Indication: ABNORMAL FAECES
  3. DUODOPA [Suspect]
     Active Substance: CARBIDOPA\LEVODOPA
     Indication: PARKINSON^S DISEASE
     Dosage: MD: 7.7 ML, CD: 6.3 ML/H, ED: 2.7 ML, CND: 3.5 ML/H, END: 2.0 ML?REMAINS AT 16 HOURS
     Route: 050
     Dates: start: 20190312
  4. MOVICOLON [Concomitant]
     Active Substance: POLYETHYLENE GLYCOL 3350\POTASSIUM CHLORIDE\SODIUM BICARBONATE\SODIUM CHLORIDE
     Indication: ABNORMAL FAECES
  5. DUODOPA [Suspect]
     Active Substance: CARBIDOPA\LEVODOPA
  6. CLOZAPINE. [Concomitant]
     Active Substance: CLOZAPINE
     Indication: HALLUCINATION
     Route: 048

REACTIONS (8)
  - Impaired quality of life [Unknown]
  - Abnormal dreams [Recovering/Resolving]
  - Migraine [Not Recovered/Not Resolved]
  - Decreased appetite [Unknown]
  - Hip fracture [Unknown]
  - Memory impairment [Unknown]
  - Urinary tract infection [Unknown]
  - Apathy [Unknown]

NARRATIVE: CASE EVENT DATE: 2020
